FAERS Safety Report 8172822-5 (Version None)
Quarter: 2012Q1

REPORT INFORMATION
  Report Type: 
  Country: None (occurrence: None)
  Receive Date: 20120229
  Receipt Date: 20120224
  Transmission Date: 20120608
  Serious: Yes (Hospitalization)
  Sender: FDA-Public Use
  Company Number: US-AMGEN-USASP2012012413

PATIENT
  Age: 52 Year
  Sex: Female
  Weight: 99 kg

DRUGS (4)
  1. NEULASTA [Suspect]
     Indication: LEIOMYOSARCOMA
     Dosage: 6 MG, PER CHEMO REGIM
     Route: 058
     Dates: start: 20110325, end: 20120120
  2. DOCETAXEL [Suspect]
     Indication: LEIOMYOSARCOMA
     Dosage: 75 MG/M2, PER CHEMO REGIM
     Route: 042
     Dates: start: 20110325, end: 20120120
  3. GEMCITABINE [Suspect]
     Indication: LEIOMYOSARCOMA
     Dosage: 900 MG/M2, PER CHEMO REGIM
     Route: 042
     Dates: start: 20110325, end: 20120120
  4. BEVACIZUMAB [Suspect]
     Indication: LEIOMYOSARCOMA
     Dosage: UNK UNK, PER CHEMO REGIM
     Route: 042
     Dates: start: 20110325, end: 20120120

REACTIONS (2)
  - SPINAL FRACTURE [None]
  - PELVIC INFECTION [None]
